FAERS Safety Report 8992099 (Version 2)
Quarter: 2013Q1

REPORT INFORMATION
  Report Type: Not Available
  Country: FR (occurrence: FR)
  Receive Date: 20121231
  Receipt Date: 20130118
  Transmission Date: 20140127
  Serious: Yes (Hospitalization)
  Sender: FDA-Public Use
  Company Number: FR-ASTELLAS-2012EU011257

PATIENT
  Age: 63 Year
  Sex: Male

DRUGS (3)
  1. PROGRAF [Suspect]
     Indication: PROPHYLAXIS AGAINST TRANSPLANT REJECTION
     Dosage: UNK
     Route: 048
     Dates: start: 20120912
  2. RIFADINE [Interacting]
     Indication: PROPHYLAXIS
     Dosage: 300 MG, UNKNOWN/D
     Route: 048
     Dates: start: 20120715, end: 20121004
  3. ISONIAZIDE [Concomitant]
     Indication: PROPHYLAXIS
     Dosage: 300 MG, UNKNOWN/D
     Route: 065

REACTIONS (3)
  - Drug interaction [Unknown]
  - Immunosuppressant drug level decreased [Recovered/Resolved]
  - Transplant rejection [Recovering/Resolving]
